FAERS Safety Report 17558896 (Version 1)
Quarter: 2020Q1

REPORT INFORMATION
  Report Type: Report from Study
  Country: None (occurrence: US)
  Receive Date: 20200318
  Receipt Date: 20200318
  Transmission Date: 20200409
  Serious: Yes (Hospitalization, Other)
  Sender: FDA-Public Use
  Company Number: US-ABBVIE-20K-163-3324231-00

PATIENT
  Age: 65 Year
  Sex: Female

DRUGS (1)
  1. HUMIRA [Suspect]
     Active Substance: ADALIMUMAB
     Indication: RHEUMATOID ARTHRITIS
     Route: 058

REACTIONS (8)
  - Macular degeneration [Recovering/Resolving]
  - Chronic obstructive pulmonary disease [Unknown]
  - Cataract [Recovering/Resolving]
  - Fall [Unknown]
  - Skin exfoliation [Not Recovered/Not Resolved]
  - Immunodeficiency [Unknown]
  - Tobacco user [Unknown]
  - Rheumatoid arthritis [Unknown]

NARRATIVE: CASE EVENT DATE: 2012
